FAERS Safety Report 4970909-9 (Version None)
Quarter: 2006Q2

REPORT INFORMATION
  Report Type: 
  Country: None (occurrence: None)
  Receive Date: 20060411
  Receipt Date: 20060411
  Transmission Date: 20061013
  Serious: Yes (Other)
  Sender: FDA-Public Use
  Company Number: None

PATIENT
  Sex: Female
  Weight: 80.76 kg

DRUGS (12)
  1. MAXIPIME [Suspect]
     Indication: CELLULITIS
     Dosage: 1GM   EVERY 12 HOURS   IV BOLUS
     Route: 040
     Dates: start: 20060322, end: 20060405
  2. DARVOCET [Concomitant]
  3. LASIX [Concomitant]
  4. THERAGRAN M [Concomitant]
  5. ZOLOFT [Concomitant]
  6. ASPIRIN [Concomitant]
  7. HUMALOG [Concomitant]
  8. PROCARDIA [Concomitant]
  9. ATACAND [Concomitant]
  10. LANTUS [Concomitant]
  11. TIMOLOL MALEATE [Concomitant]
  12. VANCOMYCIN [Concomitant]

REACTIONS (1)
  - RASH [None]
